FAERS Safety Report 13797127 (Version 1)
Quarter: 2017Q3

REPORT INFORMATION
  Report Type: Report from Study
  Country: None (occurrence: DO)
  Receive Date: 20170727
  Receipt Date: 20170727
  Transmission Date: 20171127
  Serious: Yes (Hospitalization, Other)
  Sender: FDA-Public Use
  Company Number: DO-ABBVIE-17K-279-2051638-00

PATIENT
  Age: 51 Year
  Sex: Female

DRUGS (1)
  1. HUMIRA [Suspect]
     Active Substance: ADALIMUMAB
     Indication: PSORIATIC ARTHROPATHY
     Route: 058
     Dates: start: 20160210, end: 20170712

REACTIONS (3)
  - Pulmonary oedema [Recovering/Resolving]
  - Hypertension [Recovered/Resolved]
  - Anal infection [Recovering/Resolving]

NARRATIVE: CASE EVENT DATE: 20170717
